FAERS Safety Report 6802093-0 (Version None)
Quarter: 2010Q2

REPORT INFORMATION
  Report Type: 
  Country: None (occurrence: None)
  Receive Date: 20100629
  Receipt Date: 20071026
  Transmission Date: 20101027
  Serious: No
  Sender: FDA-Public Use
  Company Number: US-PFIZER INC-2007037312

PATIENT
  Sex: Male
  Weight: 104.54 kg

DRUGS (3)
  1. VIAGRA [Suspect]
     Indication: ERECTILE DYSFUNCTION
     Dosage: PRN
     Dates: start: 20060101
  2. ENALAPRIL MALEATE [Concomitant]
  3. INSULIN [Concomitant]

REACTIONS (2)
  - DRUG EFFECT DECREASED [None]
  - INTENTIONAL DRUG MISUSE [None]
